FAERS Safety Report 24236562 (Version 1)
Quarter: 2024Q3

REPORT INFORMATION
  Report Type: Spontaneous
  Country: BR (occurrence: BR)
  Receive Date: 20240822
  Receipt Date: 20240822
  Transmission Date: 20241017
  Serious: Yes (Other)
  Sender: DR REDDYS
  Company Number: BR-RDY-LIT/BRA/24/0012006

PATIENT
  Age: 82 Year
  Sex: Female
  Weight: 69 kg

DRUGS (10)
  1. DULOXETINE [Suspect]
     Active Substance: DULOXETINE
     Indication: Adjustment disorder with depressed mood
     Dosage: 30 TO 60 MG/D
  2. PREGABALIN [Suspect]
     Active Substance: PREGABALIN
     Indication: Bruxism
  3. PREGABALIN [Suspect]
     Active Substance: PREGABALIN
     Indication: Tardive dyskinesia
  4. PREGABALIN [Suspect]
     Active Substance: PREGABALIN
     Indication: Dysphagia
  5. BIPERIDEN [Concomitant]
     Active Substance: BIPERIDEN
     Indication: Bruxism
  6. BIPERIDEN [Concomitant]
     Active Substance: BIPERIDEN
     Indication: Tardive dyskinesia
  7. BIPERIDEN [Concomitant]
     Active Substance: BIPERIDEN
     Indication: Dysphagia
  8. AMANTADINE [Concomitant]
     Active Substance: AMANTADINE
     Indication: Bruxism
  9. AMANTADINE [Concomitant]
     Active Substance: AMANTADINE
     Indication: Tardive dyskinesia
  10. AMANTADINE [Concomitant]
     Active Substance: AMANTADINE
     Indication: Dysphagia

REACTIONS (8)
  - Tardive dyskinesia [Unknown]
  - Dyskinesia [Unknown]
  - Aspiration [Unknown]
  - Pneumonia [Unknown]
  - Drug ineffective for unapproved indication [Unknown]
  - Dysphagia [Unknown]
  - Bruxism [Unknown]
  - Weight decreased [Unknown]
